FAERS Safety Report 4368443-2 (Version None)
Quarter: 2004Q2

REPORT INFORMATION
  Report Type: 
  Country: None (occurrence: None)
  Receive Date: 20040602
  Receipt Date: 20040205
  Transmission Date: 20050107
  Serious: No
  Sender: FDA-Public Use
  Company Number: US-GLAXOSMITHKLINE-A0496795A

PATIENT
  Sex: Female

DRUGS (2)
  1. AUGMENTIN [Suspect]
     Indication: EAR INFECTION
     Dosage: 500MG THREE TIMES PER DAY
     Route: 048
  2. IBUPROFEN [Concomitant]

REACTIONS (1)
  - MIGRAINE [None]
